FAERS Safety Report 20874411 (Version 1)
Quarter: 2022Q2

REPORT INFORMATION
  Report Type: Spontaneous
  Country: US (occurrence: US)
  Receive Date: 20220525
  Receipt Date: 20220525
  Transmission Date: 20220721
  Serious: No
  Sender: FDA-Public Use
  Company Number: US-GALDERMA-US2022006442

PATIENT

DRUGS (18)
  1. PROACTIV MD ADAPALENE ACNE TREATMENT [Suspect]
     Active Substance: ADAPALENE
     Indication: Product used for unknown indication
     Dosage: 1 DOSAGE FORM, QD, DAILY
     Route: 061
     Dates: start: 20220313, end: 20220401
  2. PROACTIV MD ADAPALENE ACNE TREATMENT [Suspect]
     Active Substance: ADAPALENE
     Dosage: 1 DOSAGE FORM, QWK, ONCE A WEEK
     Route: 061
     Dates: start: 20220313, end: 20220401
  3. PROACTIV MD ADAPALENE ACNE TREATMENT [Suspect]
     Active Substance: ADAPALENE
     Dosage: 1 DOSAGE FORM, QWK, EVERY OTHER WEEK
     Route: 061
     Dates: start: 20220313, end: 20220401
  4. Proactiv MD Ultra Gentle Cleanser [Concomitant]
     Indication: Product used for unknown indication
     Dosage: 1 DOSAGE FORM, QD, DAILY
     Route: 061
     Dates: start: 20220313, end: 20220401
  5. Proactiv MD Ultra Gentle Cleanser [Concomitant]
     Dosage: 1 DOSAGE FORM, QWK, ONCE A WEEK
     Route: 061
     Dates: start: 20220313, end: 20220401
  6. Proactiv MD Ultra Gentle Cleanser [Concomitant]
     Dosage: 1 DOSAGE FORM, QWK, EVERY OTHER WEEK
     Route: 061
     Dates: start: 20220313, end: 20220401
  7. Proactiv MD Ultra Hydrating Moisturizer [Concomitant]
     Indication: Product used for unknown indication
     Dosage: 1 DOSAGE FORM, QD, DAILY
     Route: 061
     Dates: start: 20220313, end: 20220401
  8. Proactiv MD Ultra Hydrating Moisturizer [Concomitant]
     Dosage: 1 DOSAGE FORM, QWK, ONCE A WEEK
     Route: 061
     Dates: start: 20220313, end: 20220401
  9. Proactiv MD Ultra Hydrating Moisturizer [Concomitant]
     Dosage: 1 DOSAGE FORM, QWK, EVERY OTHER WEEK
     Route: 061
     Dates: start: 20220313, end: 20220401
  10. Proactiv Amazonian Clay Mask [Concomitant]
     Indication: Product used for unknown indication
     Dosage: 1 DOSAGE FORM, QD, DAILY
     Route: 061
     Dates: start: 20220313, end: 20220401
  11. Proactiv Amazonian Clay Mask [Concomitant]
     Dosage: 1 DOSAGE FORM, QWK, ONCE A WEEK
     Route: 061
     Dates: start: 20220313, end: 20220401
  12. Proactiv Amazonian Clay Mask [Concomitant]
     Dosage: 1 DOSAGE FORM, QWK, EVERY OTHER WEEK
     Route: 061
     Dates: start: 20220313, end: 20220401
  13. PROACTIV ACNE BODY WASH [Concomitant]
     Active Substance: SALICYLIC ACID
     Indication: Product used for unknown indication
     Dosage: 1 DOSAGE FORM, QD, DAILY
     Route: 061
     Dates: start: 20220313, end: 20220401
  14. PROACTIV ACNE BODY WASH [Concomitant]
     Active Substance: SALICYLIC ACID
     Dosage: 1 DOSAGE FORM, QWK, ONCE A WEEK
     Route: 061
     Dates: start: 20220313, end: 20220401
  15. PROACTIV ACNE BODY WASH [Concomitant]
     Active Substance: SALICYLIC ACID
     Dosage: 1 DOSAGE FORM, QWK,
     Route: 061
     Dates: start: 20220313, end: 20220401
  16. Proactiv Post Acne Scar Gel [Concomitant]
     Indication: Product used for unknown indication
     Dosage: 1 DOSAGE FORM, QD, DAILY
     Route: 061
     Dates: start: 20220313, end: 20220401
  17. Proactiv Post Acne Scar Gel [Concomitant]
     Dosage: 1 DOSAGE FORM, QWK, ONCE A WEEK
     Route: 061
     Dates: start: 20220313, end: 20220401
  18. Proactiv Post Acne Scar Gel [Concomitant]
     Dosage: 1 DOSAGE FORM, EVERY OTHER WEEK
     Route: 061
     Dates: start: 20220313, end: 20220401

REACTIONS (6)
  - Dry skin [Recovered/Resolved]
  - Erythema [Recovered/Resolved]
  - Rash [Recovered/Resolved]
  - Skin exfoliation [Recovered/Resolved]
  - Inappropriate schedule of product administration [Recovered/Resolved]
  - Underdose [Recovered/Resolved]

NARRATIVE: CASE EVENT DATE: 20220313
